FAERS Safety Report 6328321-6 (Version None)
Quarter: 2009Q3

REPORT INFORMATION
  Report Type: 
  Country: None (occurrence: None)
  Receive Date: 20090825
  Receipt Date: 20090626
  Transmission Date: 20100115
  Serious: No
  Sender: FDA-Public Use
  Company Number: US-ABBOTT-09P-163-0576784-00

PATIENT
  Sex: Female
  Weight: 81.266 kg

DRUGS (1)
  1. SYNTHROID [Suspect]
     Indication: HYPOTHYROIDISM
     Route: 048
     Dates: start: 19640101

REACTIONS (4)
  - BLOOD THYROID STIMULATING HORMONE INCREASED [None]
  - HEPATIC ENZYME INCREASED [None]
  - NONSPECIFIC REACTION [None]
  - ORAL DISORDER [None]
